FAERS Safety Report 21602788 (Version 3)
Quarter: 2023Q1

REPORT INFORMATION
  Report Type: Report from Study
  Country: FR (occurrence: FR)
  Receive Date: 20221116
  Receipt Date: 20230307
  Transmission Date: 20230418
  Serious: Yes (Hospitalization, Disabling, Other)
  Sender: FDA-Public Use
  Company Number: FR-ABBVIE-4138349

PATIENT
  Age: 74 Year
  Sex: Male
  Weight: 66 kg

DRUGS (18)
  1. VENETOCLAX [Suspect]
     Active Substance: VENETOCLAX
     Indication: Chronic lymphocytic leukaemia
     Route: 048
     Dates: start: 20220902, end: 20220902
  2. VENETOCLAX [Suspect]
     Active Substance: VENETOCLAX
     Indication: Chronic lymphocytic leukaemia
     Route: 048
     Dates: start: 20220720, end: 20220824
  3. PANTOPRAZOLE [Concomitant]
     Active Substance: PANTOPRAZOLE
     Indication: Prophylaxis
     Dosage: 1 TABLET AT NIGHT
     Route: 048
     Dates: start: 20220727, end: 2022
  4. PANTOPRAZOLE [Concomitant]
     Active Substance: PANTOPRAZOLE
     Indication: Prophylaxis
     Dosage: 1 TABLET AT NIGHT
     Route: 048
     Dates: start: 20220912, end: 20221008
  5. FILGRASTIM [Concomitant]
     Active Substance: FILGRASTIM
     Indication: Product used for unknown indication
     Dosage: 30 MU/0,5 ML
     Route: 058
     Dates: start: 20220912, end: 20221008
  6. FILGRASTIM [Concomitant]
     Active Substance: FILGRASTIM
     Indication: Product used for unknown indication
     Dates: start: 20220911, end: 20220911
  7. CYTARABINE [Concomitant]
     Active Substance: CYTARABINE
     Indication: Product used for unknown indication
     Dates: start: 20220720
  8. VALACYCLOVIR HYDROCHLORIDE [Concomitant]
     Active Substance: VALACYCLOVIR HYDROCHLORIDE
     Indication: Infection prophylaxis
     Dosage: 500 MILLIGRAM
     Route: 048
     Dates: start: 20220912, end: 20221008
  9. VALACYCLOVIR HYDROCHLORIDE [Concomitant]
     Active Substance: VALACYCLOVIR HYDROCHLORIDE
     Indication: Infection prophylaxis
     Route: 048
     Dates: start: 20220525, end: 2022
  10. Piperacilline Tazocilline [Concomitant]
     Indication: Product used for unknown indication
     Dosage: 96/500MG
     Route: 042
     Dates: start: 20220910, end: 20220911
  11. Dragogoc [Concomitant]
     Indication: Constipation
     Dosage: 1 TO 6 PER DAY
     Dates: start: 20220720
  12. FUNGIZONE [Concomitant]
     Active Substance: AMPHOTERICIN B
     Indication: Mucosal inflammation
     Dosage: TIME INTERVAL: 0.33333333 DAYS: 3 TEASPOON
     Route: 048
     Dates: start: 20220912, end: 20220921
  13. ELIQUIS [Concomitant]
     Active Substance: APIXABAN
     Indication: Product used for unknown indication
     Route: 048
     Dates: start: 20220912, end: 20221011
  14. BISOPROLOL [Concomitant]
     Active Substance: BISOPROLOL
     Indication: Product used for unknown indication
     Route: 048
     Dates: start: 20220912, end: 20221008
  15. BICALAN B/BOUCH SOL STERIL [Concomitant]
     Indication: Product used for unknown indication
     Dosage: TIME INTERVAL: 0.33333333 DAYS: 1 MOUTHWASH
     Route: 048
     Dates: start: 20220912, end: 20220921
  16. CANDESARTAN [Concomitant]
     Active Substance: CANDESARTAN
     Indication: Product used for unknown indication
     Dosage: AT NIGHT
     Route: 048
     Dates: start: 20220912, end: 20221011
  17. Red blood cell transfusion [Concomitant]
     Indication: Product used for unknown indication
     Dates: start: 202209
  18. GRANULOCYTE COLONY-STIMULATING FACTOR NOS [Concomitant]
     Active Substance: GRANULOCYTE COLONY-STIMULATING FACTOR NOS
     Indication: Product used for unknown indication
     Dates: start: 20220910, end: 20220910

REACTIONS (9)
  - Febrile neutropenia [Recovered/Resolved]
  - Aplasia [Recovered/Resolved]
  - Toxic skin eruption [Unknown]
  - Carotid artery stenosis [Unknown]
  - Thrombocytopenia [Not Recovered/Not Resolved]
  - Constipation [Unknown]
  - Mucosal inflammation [Unknown]
  - Acute kidney injury [Unknown]
  - Stomatitis [Unknown]

NARRATIVE: CASE EVENT DATE: 20220101
